FAERS Safety Report 22081049 (Version 1)
Quarter: 2023Q1

REPORT INFORMATION
  Report Type: Report from Study
  Country: US (occurrence: US)
  Receive Date: 20230309
  Receipt Date: 20230309
  Transmission Date: 20230417
  Serious: Yes (Hospitalization, Other)
  Sender: FDA-Public Use
  Company Number: US-JAZZ PHARMACEUTICALS-2023-US-005275

PATIENT
  Sex: Male

DRUGS (1)
  1. EPIDIOLEX [Suspect]
     Active Substance: CANNABIDIOL
     Indication: Partial seizures
     Dosage: 5.2 MILLILITER
     Route: 048
     Dates: start: 202211

REACTIONS (5)
  - Seizure [Unknown]
  - Pneumonia [Unknown]
  - Vomiting [Unknown]
  - Respiratory syncytial virus infection [Unknown]
  - Off label use [Unknown]
